FAERS Safety Report 9028896 (Version 1)
Quarter: 2013Q1

REPORT INFORMATION
  Report Type: Spontaneous
  Country: US (occurrence: US)
  Receive Date: 20130124
  Receipt Date: 20130124
  Transmission Date: 20140127
  Serious: No
  Sender: FDA-Public Use
  Company Number: US-PFIZER INC-2013028663

PATIENT
  Age: 52 Year
  Sex: Female

DRUGS (4)
  1. GABAPENTIN [Suspect]
     Dosage: UNK
  2. CITALOPRAM [Suspect]
     Dosage: UNK
  3. LISINOPRIL [Suspect]
     Dosage: UNK
  4. DEPAKOTE [Suspect]
     Dosage: UNK

REACTIONS (2)
  - Drug hypersensitivity [Unknown]
  - Rubber sensitivity [Unknown]
